FAERS Safety Report 11327506 (Version 1)
Quarter: 2015Q3

REPORT INFORMATION
  Report Type: Spontaneous
  Country: US (occurrence: None)
  Receive Date: 20150730
  Receipt Date: 20150730
  Transmission Date: 20151125
  Serious: Yes (Death, Hospitalization)
  Sender: FDA-Public Use
  Company Number: None

PATIENT
  Sex: Female
  Weight: 74.84 kg

DRUGS (6)
  1. AMBIEN [Suspect]
     Active Substance: ZOLPIDEM TARTRATE
     Indication: SLEEP DISORDER
     Dosage: 5 TO 25 MG?VARIOUS?5MG TO 25 MG DAY?MOUTH
     Route: 048
     Dates: start: 2012, end: 20140810
  2. TRAZODONE [Concomitant]
     Active Substance: TRAZODONE HYDROCHLORIDE
  3. AMBIEN [Suspect]
     Active Substance: ZOLPIDEM TARTRATE
     Indication: DEPRESSION
     Dosage: 5 TO 25 MG?VARIOUS?5MG TO 25 MG DAY?MOUTH
     Route: 048
     Dates: start: 2012, end: 20140810
  4. AMBIEN [Suspect]
     Active Substance: ZOLPIDEM TARTRATE
     Indication: ANXIETY
     Dosage: 5 TO 25 MG?VARIOUS?5MG TO 25 MG DAY?MOUTH
     Route: 048
     Dates: start: 2012, end: 20140810
  5. ANTI-DEPRESSION [Concomitant]
  6. BIRTH CONTROL [Concomitant]
     Active Substance: UNSPECIFIED INGREDIENT

REACTIONS (2)
  - Drug dependence [None]
  - Completed suicide [None]

NARRATIVE: CASE EVENT DATE: 2012
